FAERS Safety Report 25005578 (Version 1)
Quarter: 2025Q1

REPORT INFORMATION
  Report Type: Spontaneous
  Country: US (occurrence: US)
  Receive Date: 20250224
  Receipt Date: 20250224
  Transmission Date: 20250409
  Serious: Yes (Life-Threatening, Hospitalization)
  Sender: DR REDDYS
  Company Number: None

PATIENT
  Age: 28 Year
  Sex: Male

DRUGS (1)
  1. FENTANYL [Suspect]
     Active Substance: FENTANYL
     Indication: Product used for unknown indication

REACTIONS (9)
  - Encephalopathy [Recovering/Resolving]
  - Hyperthermia [Recovered/Resolved]
  - Acute respiratory distress syndrome [Recovering/Resolving]
  - Hepatitis [Recovering/Resolving]
  - Acute kidney injury [Recovering/Resolving]
  - Ejection fraction decreased [Recovering/Resolving]
  - Disseminated intravascular coagulation [Recovering/Resolving]
  - Multiple organ dysfunction syndrome [Recovering/Resolving]
  - Epistaxis [Unknown]
